FAERS Safety Report 9725754 (Version 2)
Quarter: 2013Q4

REPORT INFORMATION
  Report Type: Spontaneous
  Country: FR (occurrence: FR)
  Receive Date: 20131203
  Receipt Date: 20131204
  Transmission Date: 20140711
  Serious: Yes (Life-Threatening)
  Sender: FDA-Public Use
  Company Number: FR-JNJFOC-20131117359

PATIENT
  Sex: Female

DRUGS (3)
  1. XARELTO [Suspect]
     Indication: ARRHYTHMIA
     Route: 048
  2. XARELTO [Suspect]
     Indication: CEREBROVASCULAR ACCIDENT PROPHYLAXIS
     Route: 048
  3. XARELTO [Suspect]
     Indication: ATRIAL FIBRILLATION
     Route: 048

REACTIONS (4)
  - Pericardial haemorrhage [Unknown]
  - Cardiogenic shock [Unknown]
  - Cardiac tamponade [Unknown]
  - Cardiac arrest [Unknown]
